FAERS Safety Report 9370501 (Version 4)
Quarter: 2013Q4

REPORT INFORMATION
  Report Type: Spontaneous
  Country: FR (occurrence: FR)
  Receive Date: 20130626
  Receipt Date: 20131022
  Transmission Date: 20140711
  Serious: Yes (Hospitalization)
  Sender: FDA-Public Use
  Company Number: FR-TEVA-415093ISR

PATIENT
  Age: 62 Year
  Sex: Male
  Weight: 102 kg

DRUGS (11)
  1. FUROSEMIDE TEVA 40 MG, SCORED TABLET [Suspect]
     Indication: HYPERTENSION
     Dosage: 40 MILLIGRAM DAILY;
     Route: 048
     Dates: start: 201305, end: 20130610
  2. SECTRAL [Concomitant]
     Dosage: 200 MILLIGRAM DAILY;
  3. ZESTRIL [Concomitant]
     Dosage: 20 MILLIGRAM DAILY;
  4. CRESTOR [Concomitant]
  5. OMACOR [Concomitant]
  6. KOMBOGLYZE [Concomitant]
  7. PREVISCAN [Concomitant]
     Dosage: FREQUENCY: 1.5
  8. KARDEGIC [Concomitant]
     Dosage: 75 MILLIGRAM DAILY;
     Route: 048
  9. TRANSILANE [Concomitant]
  10. AMIODARONE TEVA [Concomitant]
  11. OSLIF BREESHALER [Concomitant]

REACTIONS (2)
  - Pneumonia [Recovered/Resolved]
  - Coma [Recovered/Resolved]
